FAERS Safety Report 25861429 (Version 2)
Quarter: 2025Q4

REPORT INFORMATION
  Report Type: Spontaneous
  Country: CA (occurrence: CA)
  Receive Date: 20250929
  Receipt Date: 20251001
  Transmission Date: 20260117
  Serious: Yes (Other)
  Sender: JOHNSON AND JOHNSON
  Company Number: CA-JNJFOC-20250941401

PATIENT
  Sex: Female

DRUGS (1)
  1. REMICADE [Suspect]
     Active Substance: INFLIXIMAB
     Indication: SAPHO syndrome
     Route: 041

REACTIONS (14)
  - Mouth swelling [Unknown]
  - Peripheral swelling [Unknown]
  - Migraine [Unknown]
  - Impaired quality of life [Unknown]
  - Joint swelling [Unknown]
  - Eye swelling [Unknown]
  - Skin swelling [Unknown]
  - Eczema [Unknown]
  - Abdominal pain upper [Unknown]
  - Diarrhoea [Unknown]
  - Hypersensitivity [Unknown]
  - Skin burning sensation [Unknown]
  - Urticaria [Unknown]
  - Intentional product use issue [Unknown]
